FAERS Safety Report 9254658 (Version 1)
Quarter: 2013Q2

REPORT INFORMATION
  Report Type: Spontaneous
  Country: US (occurrence: None)
  Receive Date: 20130418
  Receipt Date: 20130418
  Transmission Date: 20140414
  Serious: Yes (Other)
  Sender: FDA-Public Use
  Company Number: JPI-P-031068

PATIENT
  Age: 64 Year
  Sex: Male
  Weight: 105.24 kg

DRUGS (6)
  1. XYREM (500 MILLIGRAM/MILLILITERS, SOLUTION) (SODIUM OXYBATE) [Suspect]
     Indication: CATAPLEXY
     Dosage: UNKNOWN DOSE
     Dates: start: 20120726
  2. METHYLPHENIDATE [Concomitant]
  3. CALCIUM [Concomitant]
  4. MELOXICAM [Concomitant]
  5. GABAPENTIN [Concomitant]
  6. HYDROCHLOROTHIAZIDE [Concomitant]

REACTIONS (3)
  - Meniscus injury [None]
  - Arthritis [None]
  - Thrombosis [None]
